FAERS Safety Report 10180818 (Version 1)
Quarter: 2014Q2

REPORT INFORMATION
  Report Type: Spontaneous
  Country: US (occurrence: US)
  Receive Date: 20140519
  Receipt Date: 20140519
  Transmission Date: 20141212
  Serious: No
  Sender: FDA-Public Use
  Company Number: US-AMGEN INC.-USASP2014010651

PATIENT
  Age: 68 Year
  Sex: Female

DRUGS (9)
  1. PROLIA [Suspect]
     Indication: SENILE OSTEOPOROSIS
     Dosage: UNK
     Route: 065
  2. LEVOTHYROXINE [Concomitant]
     Dosage: UNK
     Route: 065
  3. RESTASIS [Concomitant]
     Indication: DRY EYE
     Dosage: UNK UNK, 1 DROP, BID
     Route: 065
  4. CALCICHEW [Concomitant]
     Dosage: 500 MG, BID
     Route: 065
  5. VITAMIN D                          /00107901/ [Concomitant]
     Dosage: UNK
     Route: 065
  6. VITAMIN K                          /00032401/ [Concomitant]
     Dosage: UNK
     Route: 065
  7. OMEGA 3 FISH OIL                   /01334101/ [Concomitant]
     Dosage: 1000 MG, QD
     Route: 065
  8. VITAMIN D2 [Concomitant]
     Dosage: 2000 IU, QD
     Route: 065
  9. CENTRUM SILVER                     /02363801/ [Concomitant]

REACTIONS (3)
  - Dental caries [Unknown]
  - Tooth fracture [Not Recovered/Not Resolved]
  - Tooth disorder [Unknown]
